FAERS Safety Report 20869175 (Version 1)
Quarter: 2022Q2

REPORT INFORMATION
  Report Type: Report from Study
  Country: US (occurrence: US)
  Receive Date: 20220524
  Receipt Date: 20220524
  Transmission Date: 20220721
  Serious: No
  Sender: FDA-Public Use
  Company Number: US-INCYTE CORPORATION-2022IN003772

PATIENT

DRUGS (1)
  1. JAKAFI [Suspect]
     Active Substance: RUXOLITINIB
     Indication: Polycythaemia vera
     Dosage: 20 MILLIGRAM, BID
     Route: 065

REACTIONS (6)
  - Haematocrit increased [Unknown]
  - Haemoglobin increased [Unknown]
  - Platelet count increased [Unknown]
  - White blood cell count increased [Unknown]
  - Haematotoxicity [Unknown]
  - Splenomegaly [Unknown]
